FAERS Safety Report 4349681-1 (Version None)
Quarter: 2004Q1

REPORT INFORMATION
  Report Type: 
  Country: None (occurrence: None)
  Receive Date: 20040329
  Receipt Date: 20040126
  Transmission Date: 20041129
  Serious: No
  Sender: FDA-Public Use
  Company Number: USA030432880

PATIENT
  Age: 9 Year
  Sex: Female
  Weight: 25 kg

DRUGS (6)
  1. STRATTERA [Suspect]
     Indication: ATTENTION DEFICIT/HYPERACTIVITY DISORDER
     Dosage: 40 MG/DAY
     Dates: start: 20030326
  2. CEPHALEXIN [Concomitant]
  3. CONCERTA [Concomitant]
  4. FISH OIL [Concomitant]
  5. EVENING PRIMROSE OIL [Concomitant]
  6. VITAMINS NOS [Concomitant]

REACTIONS (6)
  - DISTURBANCE IN ATTENTION [None]
  - DRUG INEFFECTIVE [None]
  - HEADACHE [None]
  - INCREASED APPETITE [None]
  - INSOMNIA [None]
  - WEIGHT INCREASED [None]
